FAERS Safety Report 4495559-2 (Version None)
Quarter: 2004Q4

REPORT INFORMATION
  Report Type: 
  Country: None (occurrence: None)
  Receive Date: 20041104
  Receipt Date: 20041022
  Transmission Date: 20050328
  Serious: Yes (Other)
  Sender: FDA-Public Use
  Company Number: US-JNJFOC-20041007141

PATIENT
  Sex: Male
  Weight: 79.47 kg

DRUGS (13)
  1. REMICADE [Suspect]
     Route: 042
  2. REMICADE [Suspect]
     Route: 042
  3. METHOTREXATE [Concomitant]
     Dosage: 5 TABS/DAY
  4. CELEBREX [Concomitant]
  5. PREDNISONE [Concomitant]
  6. ZETIA [Concomitant]
  7. LOPRESSOR [Concomitant]
  8. COLESTID [Concomitant]
     Dosage: 4 TABS/DAY
  9. APAP TAB [Concomitant]
  10. ASPIRIN [Concomitant]
  11. DARVOCET [Concomitant]
  12. DARVOCET [Concomitant]
     Dosage: 1 TABLET.
  13. FOLIC ACID [Concomitant]

REACTIONS (7)
  - BODY TEMPERATURE INCREASED [None]
  - DECREASED APPETITE [None]
  - HAEMATOCRIT DECREASED [None]
  - HAEMOGLOBIN DECREASED [None]
  - NON-HODGKIN'S LYMPHOMA [None]
  - RED BLOOD CELL COUNT DECREASED [None]
  - RED BLOOD CELL SEDIMENTATION RATE INCREASED [None]
